FAERS Safety Report 21861123 (Version 3)
Quarter: 2023Q1

REPORT INFORMATION
  Report Type: Spontaneous
  Country: BR (occurrence: BR)
  Receive Date: 20230113
  Receipt Date: 20230202
  Transmission Date: 20230417
  Serious: Yes (Other)
  Sender: FDA-Public Use
  Company Number: BR-BAXTER-2023BAX010398

PATIENT
  Age: 41 Year
  Sex: Female

DRUGS (4)
  1. IRON [Suspect]
     Active Substance: IRON
     Indication: Mineral supplementation
     Dosage: 2 AMPOULES DILUTED IN 200 ML OF 0.9% SALINE SOLUTION IN 60 MINUTES, TWO TIMES A WEEK FOR TWO WEEKS
     Route: 042
     Dates: start: 20221201, end: 20221201
  2. SODIUM CHLORIDE [Suspect]
     Active Substance: SODIUM CHLORIDE
     Indication: Medication dilution
     Dosage: 200 MILLILITERS (ML) OF 0.9% SALINE SOLUTION, IN 60 MINUTES TWO TIMES A WEEK FOR TWO WEEKS
     Route: 042
     Dates: start: 20221201, end: 20221201
  3. DIPHENHYDRAMINE [Suspect]
     Active Substance: DIPHENHYDRAMINE
     Indication: Drug therapy
     Dosage: 50 MG/ML
     Route: 042
     Dates: start: 20221201, end: 20221201
  4. HYDROCORTISONE [Suspect]
     Active Substance: HYDROCORTISONE
     Indication: Drug therapy
     Dosage: 500 MILLIGRAMS (MG)
     Route: 042
     Dates: start: 20221201, end: 20221201

REACTIONS (5)
  - Burning sensation [Recovered/Resolved]
  - Paraesthesia [Recovered/Resolved]
  - Pruritus [Recovered/Resolved]
  - Off label use [Recovered/Resolved]
  - Paraesthesia [Unknown]

NARRATIVE: CASE EVENT DATE: 20221201
